FAERS Safety Report 7011755-4 (Version None)
Quarter: 2010Q3

REPORT INFORMATION
  Report Type: 
  Country: None (occurrence: None)
  Receive Date: 20100923
  Receipt Date: 20090528
  Transmission Date: 20110219
  Serious: No
  Sender: FDA-Public Use
  Company Number: US-WYE-H09547409

PATIENT
  Age: 51 Year
  Sex: Female
  Weight: 95.34 kg

DRUGS (4)
  1. PREMARIN [Suspect]
     Indication: HYSTERECTOMY
     Route: 048
     Dates: start: 19781201
  2. PREMARIN [Suspect]
     Indication: ARTHRITIS
  3. LISINOPRIL [Concomitant]
  4. SYNTHROID [Concomitant]

REACTIONS (2)
  - ANXIETY [None]
  - MOOD SWINGS [None]
